FAERS Safety Report 25469537 (Version 2)
Quarter: 2025Q2

REPORT INFORMATION
  Report Type: Spontaneous
  Country: PL (occurrence: PL)
  Receive Date: 20250623
  Receipt Date: 20250625
  Transmission Date: 20250717
  Serious: Yes (Life-Threatening, Hospitalization, Other)
  Sender: NOVARTIS
  Company Number: PL-002147023-NVSC2022PL254408

PATIENT
  Age: 8 Year
  Sex: Male

DRUGS (16)
  1. CYCLOSPORINE [Suspect]
     Active Substance: CYCLOSPORINE
     Indication: Prophylaxis against graft versus host disease
     Route: 065
  2. FLUDARABINE [Suspect]
     Active Substance: FLUDARABINE PHOSPHATE
     Indication: Allogenic stem cell transplantation
     Route: 065
  3. FLUDARABINE [Suspect]
     Active Substance: FLUDARABINE PHOSPHATE
     Indication: Immunosuppressant drug therapy
  4. MELPHALAN [Suspect]
     Active Substance: MELPHALAN
     Indication: Allogenic stem cell transplantation
     Route: 065
  5. MELPHALAN [Suspect]
     Active Substance: MELPHALAN
     Indication: Immunosuppressant drug therapy
  6. THIOTEPA [Suspect]
     Active Substance: THIOTEPA
     Indication: Allogenic stem cell transplantation
     Route: 065
  7. GANCICLOVIR [Concomitant]
     Active Substance: GANCICLOVIR
     Indication: Cytomegalovirus infection
     Route: 065
  8. GANCICLOVIR [Concomitant]
     Active Substance: GANCICLOVIR
     Indication: Adenovirus infection
     Route: 065
  9. FOSCARNET [Concomitant]
     Active Substance: FOSCARNET
     Indication: Cytomegalovirus infection
     Route: 065
  10. FOSCARNET [Concomitant]
     Active Substance: FOSCARNET
     Indication: Adenovirus infection
     Route: 065
  11. BRINCIDOFOVIR [Concomitant]
     Active Substance: BRINCIDOFOVIR
     Indication: Cytomegalovirus infection
     Route: 065
  12. BRINCIDOFOVIR [Concomitant]
     Active Substance: BRINCIDOFOVIR
     Indication: Adenovirus infection
     Route: 065
  13. CIDOFOVIR [Concomitant]
     Active Substance: CIDOFOVIR
     Indication: Adenovirus infection
     Route: 065
  14. CIDOFOVIR [Concomitant]
     Active Substance: CIDOFOVIR
     Indication: Cytomegalovirus infection
     Route: 065
  15. Immunoglobulin anticytomegalovirus [Concomitant]
     Indication: Adenovirus infection
     Route: 065
  16. Immunoglobulin anticytomegalovirus [Concomitant]
     Indication: Cytomegalovirus infection

REACTIONS (6)
  - Acute graft versus host disease in skin [Recovered/Resolved]
  - Acute graft versus host disease in intestine [Recovered/Resolved]
  - Acute graft versus host disease in liver [Recovered/Resolved]
  - Drug ineffective [Unknown]
  - Cytomegalovirus infection [Unknown]
  - Adenovirus infection [Unknown]
